FAERS Safety Report 4268813-7 (Version None)
Quarter: 2004Q1

REPORT INFORMATION
  Report Type: 
  Country: None (occurrence: None)
  Receive Date: 20040113
  Receipt Date: 20031103
  Transmission Date: 20041129
  Serious: Yes (Hospitalization, Other)
  Sender: FDA-Public Use
  Company Number: 200319772US

PATIENT
  Sex: Female

DRUGS (9)
  1. TAXOTERE [Suspect]
     Indication: BREAST CANCER METASTATIC
     Route: 042
     Dates: start: 20031015, end: 20031110
  2. ANTINEOPLASTIC AND IMMUNOSUPPRESSIVE AGENTS [Suspect]
     Indication: BREAST CANCER METASTATIC
     Route: 048
     Dates: start: 20031001, end: 20031115
  3. NEXIUM [Concomitant]
     Indication: DYSPEPSIA
     Route: 048
     Dates: start: 20030801
  4. ATIVAN [Concomitant]
     Indication: ANXIETY
     Dosage: DOSE: UNK
     Dates: start: 20030801
  5. ZOFRAN [Concomitant]
     Indication: NAUSEA
     Dates: start: 20031014
  6. IMODIUM [Concomitant]
     Indication: DIARRHOEA
     Route: 048
  7. DEXAMETHASONE [Concomitant]
     Indication: PREMEDICATION
  8. SYNTHROID [Concomitant]
     Indication: HYPOTHYROIDISM
     Route: 048
     Dates: start: 20031001
  9. CARAFATE [Concomitant]
     Indication: DYSPEPSIA
     Dosage: DOSE: 15-30
     Route: 048

REACTIONS (11)
  - ABDOMINAL DISTENSION [None]
  - BLOOD AMYLASE INCREASED [None]
  - CHOLELITHIASIS [None]
  - FATIGUE [None]
  - FLATULENCE [None]
  - LEUKOPENIA [None]
  - LIPASE INCREASED [None]
  - NEUTROPENIA [None]
  - NEUTROPHIL COUNT DECREASED [None]
  - NIGHT SWEATS [None]
  - PANCREATITIS [None]
